FAERS Safety Report 5199040-7 (Version None)
Quarter: 2006Q4

REPORT INFORMATION
  Report Type: 
  Country: None (occurrence: None)
  Receive Date: 20061016
  Receipt Date: 20060619
  Transmission Date: 20070319
  Serious: No
  Sender: FDA-Public Use
  Company Number: 2006SP002453

PATIENT
  Age: 64 Year
  Sex: Female
  Weight: 49.8957 kg

DRUGS (16)
  1. LUNESTA [Suspect]
     Indication: INSOMNIA
     Dosage: SEE IMAGE
     Route: 048
     Dates: start: 20050101, end: 20050101
  2. LUNESTA [Suspect]
     Indication: INSOMNIA
     Dosage: SEE IMAGE
     Route: 048
     Dates: start: 20050101, end: 20050101
  3. LUNESTA [Suspect]
     Indication: INSOMNIA
     Dosage: SEE IMAGE
     Route: 048
     Dates: start: 20060101, end: 20060101
  4. LUNESTA [Suspect]
     Indication: INSOMNIA
     Dosage: SEE IMAGE
     Route: 048
     Dates: start: 20060101, end: 20060101
  5. LUNESTA [Suspect]
     Indication: INSOMNIA
     Dosage: SEE IMAGE
     Route: 048
     Dates: start: 20060601, end: 20060601
  6. LUNESTA [Suspect]
     Indication: INSOMNIA
     Dosage: SEE IMAGE
     Route: 048
     Dates: start: 20060601
  7. ADVAIR DISKUS 100/50 [Concomitant]
  8. ALEVE [Concomitant]
  9. DETROL [Concomitant]
  10. MOBIC [Concomitant]
  11. VITAMIN B6 [Concomitant]
  12. VITAMIN B-12 [Concomitant]
  13. ASCORBIC ACID [Concomitant]
  14. CENTRUM SILVER [Concomitant]
  15. CITRICAL [Concomitant]
  16. ALBUTEROL [Concomitant]

REACTIONS (5)
  - ADENOLIPOMA [None]
  - ARTHRITIS [None]
  - BLADDER DISORDER [None]
  - DRUG INEFFECTIVE [None]
  - MIDDLE INSOMNIA [None]
